FAERS Safety Report 5307345-1 (Version None)
Quarter: 2007Q1

REPORT INFORMATION
  Report Type: 
  Country: None (occurrence: None)
  Receive Date: 20070201
  Receipt Date: 20061209
  Transmission Date: 20070707
  Serious: No
  Sender: FDA-Public Use
  Company Number: 2006PV026655

PATIENT
  Age: 36 Year
  Sex: Male
  Weight: 199.5827 kg

DRUGS (2)
  1. BYETTA [Suspect]
     Indication: METABOLIC SYNDROME
     Dosage: SEE IMAGE
     Route: 058
     Dates: start: 20061106, end: 20061201
  2. BYETTA [Suspect]
     Indication: METABOLIC SYNDROME
     Dosage: SEE IMAGE
     Route: 058
     Dates: start: 20061208

REACTIONS (3)
  - INJECTION SITE BRUISING [None]
  - INJECTION SITE HAEMORRHAGE [None]
  - WEIGHT INCREASED [None]
